FAERS Safety Report 6899203-6 (Version None)
Quarter: 2010Q3

REPORT INFORMATION
  Report Type: 
  Country: None (occurrence: None)
  Receive Date: 20100802
  Receipt Date: 20080208
  Transmission Date: 20110219
  Serious: No
  Sender: FDA-Public Use
  Company Number: US-PFIZER INC-2007107157

PATIENT
  Sex: Female
  Weight: 85.28 kg

DRUGS (4)
  1. LYRICA [Suspect]
     Indication: FIBROMYALGIA
  2. BACLOFEN [Concomitant]
  3. CYMBALTA [Concomitant]
  4. NAPROXEN [Concomitant]

REACTIONS (1)
  - VISION BLURRED [None]
